FAERS Safety Report 6987242-6 (Version None)
Quarter: 2010Q3

REPORT INFORMATION
  Report Type: 
  Country: None (occurrence: None)
  Receive Date: 20100827
  Receipt Date: 20100217
  Transmission Date: 20110219
  Serious: Yes (Other)
  Sender: FDA-Public Use
  Company Number: AMAG201000114

PATIENT
  Age: 42 Year
  Sex: Female
  Weight: 83 kg

DRUGS (9)
  1. FERAHEME [Suspect]
     Indication: IRON DEFICIENCY ANAEMIA
     Dosage: 510 MG, SINGLE, INTRAVENOUS ; 510 MG, SINGLE, INTRAVENOUS
     Route: 042
     Dates: start: 20100121, end: 20100121
  2. FERAHEME [Suspect]
     Indication: IRON DEFICIENCY ANAEMIA
     Dosage: 510 MG, SINGLE, INTRAVENOUS ; 510 MG, SINGLE, INTRAVENOUS
     Route: 042
     Dates: start: 20100216, end: 20100216
  3. ZEMPLAR (PAICALCITOL) [Concomitant]
  4. SIMVASTATIN [Concomitant]
  5. ACIPHEX [Concomitant]
  6. RENVELA [Concomitant]
  7. AMBIEN [Concomitant]
  8. XANAX [Concomitant]
  9. COUMADIN [Concomitant]

REACTIONS (3)
  - HYPOTENSION [None]
  - MALAISE [None]
  - PALLOR [None]
